FAERS Safety Report 7918234 (Version 4)
Quarter: 2012Q4

REPORT INFORMATION
  Report Type: Report from Study
  Country: JP (occurrence: JP)
  Receive Date: 20110428
  Receipt Date: 20120924
  Transmission Date: 20130627
  Serious: Yes (Death, Other)
  Sender: FDA-Public Use
  Company Number: PHHY2011JP35084

PATIENT
  Age: 76 Year
  Sex: Male

DRUGS (4)
  1. DIOVAN [Suspect]
     Indication: HYPERTENSION
     Dosage: 160 mg, UNK
     Route: 048
     Dates: start: 20090608
  2. NORVASC [Concomitant]
     Dosage: 2.5 mg
     Route: 048
     Dates: start: 20071121
  3. PLAVIX [Concomitant]
     Dosage: 75 mg
     Route: 048
     Dates: start: 20071121
  4. ALOSITOL [Concomitant]
     Dosage: 100 mg, UNK
     Route: 048
     Dates: start: 20071121

REACTIONS (2)
  - Cerebrovascular accident [Fatal]
  - Blood pressure diastolic decreased [Recovering/Resolving]
